FAERS Safety Report 10340683 (Version 2)
Quarter: 2014Q3

REPORT INFORMATION
  Report Type: Report from Study
  Country: US (occurrence: US)
  Receive Date: 20140724
  Receipt Date: 20140812
  Transmission Date: 20150326
  Serious: Yes (Life-Threatening, Hospitalization)
  Sender: FDA-Public Use
  Company Number: US-ALEXION-A201402833

PATIENT

DRUGS (1)
  1. SOLIRIS [Suspect]
     Active Substance: ECULIZUMAB
     Indication: HAEMOLYTIC URAEMIC SYNDROME
     Dosage: 1200 MG, Q2W
     Route: 042
     Dates: start: 20140612

REACTIONS (3)
  - Incoherent [Not Recovered/Not Resolved]
  - Confusional state [Not Recovered/Not Resolved]
  - Alcohol use [Unknown]

NARRATIVE: CASE EVENT DATE: 20140715
